FAERS Safety Report 7327167-X (Version None)
Quarter: 2011Q1

REPORT INFORMATION
  Report Type: 
  Country: None (occurrence: None)
  Receive Date: 20110218
  Receipt Date: 20110208
  Transmission Date: 20110831
  Serious: Yes (Other)
  Sender: FDA-Public Use
  Company Number: 1000018727

PATIENT
  Sex: Female

DRUGS (1)
  1. LEXAPRO [Suspect]

REACTIONS (4)
  - INTENTIONAL SELF-INJURY [None]
  - VISUAL FIELD DEFECT [None]
  - HALLUCINATION, VISUAL [None]
  - PAPILLOEDEMA [None]
